FAERS Safety Report 12298726 (Version 1)
Quarter: 2016Q2

REPORT INFORMATION
  Report Type: Spontaneous
  Country: US (occurrence: US)
  Receive Date: 20160425
  Receipt Date: 20160425
  Transmission Date: 20160815
  Serious: No
  Sender: FDA-Public Use
  Company Number: US-BIOGEN-2016BI00227174

PATIENT
  Age: 45 Year
  Sex: Female

DRUGS (1)
  1. AVONEX [Suspect]
     Active Substance: INTERFERON BETA-1A
     Indication: MULTIPLE SCLEROSIS
     Route: 030

REACTIONS (5)
  - Multiple sclerosis relapse [Unknown]
  - Loss of consciousness [Recovered/Resolved]
  - Face injury [Unknown]
  - Hemianaesthesia [Unknown]
  - Fall [Unknown]

NARRATIVE: CASE EVENT DATE: 20160321
